FAERS Safety Report 13372850 (Version 1)
Quarter: 2017Q1

REPORT INFORMATION
  Report Type: Spontaneous
  Country: US (occurrence: US)
  Receive Date: 20170325
  Receipt Date: 20170325
  Transmission Date: 20170429
  Serious: No
  Sender: FDA-Public Use
  Company Number: None

PATIENT
  Age: 69 Year
  Sex: Female
  Weight: 56.25 kg

DRUGS (8)
  1. CALCIUM [Concomitant]
     Active Substance: CALCIUM
  2. VITAMIN D [Concomitant]
     Active Substance: CHOLECALCIFEROL
  3. VITAMIN A [Concomitant]
     Active Substance: VITAMIN A
  4. VITAMIN C [Concomitant]
     Active Substance: ASCORBIC ACID
  5. GARLIC. [Concomitant]
     Active Substance: GARLIC
  6. BRPM/PSE/DM SYP GENERIC FOR BROM [Suspect]
     Active Substance: BROMPHENIRAMINE MALEATE\DEXTROMETHORPHAN HYDROBROMIDE\PSEUDOEPHEDRINE HYDROCHLORIDE
     Indication: PULMONARY CONGESTION
     Dosage: QUANTITY:1 TEASPOON(S);?
     Route: 048
     Dates: start: 20170323, end: 20170324
  7. FISH OIL [Concomitant]
     Active Substance: FISH OIL
  8. CQ10 [Concomitant]
     Active Substance: UBIDECARENONE

REACTIONS (1)
  - Insomnia [None]

NARRATIVE: CASE EVENT DATE: 20170323
